FAERS Safety Report 9631390 (Version 1)
Quarter: 2013Q4

REPORT INFORMATION
  Report Type: Spontaneous
  Country: GB (occurrence: None)
  Receive Date: 20131015
  Receipt Date: 20131015
  Transmission Date: 20140711
  Serious: Yes (Other)
  Sender: FDA-Public Use
  Company Number: AUR-APL-2013-08373

PATIENT
  Age: 51 Year
  Sex: Male

DRUGS (3)
  1. RIBAVIRIN (RIBAVIRIN) [Suspect]
     Indication: HEPATITIS C
     Route: 048
     Dates: start: 201301
  2. PEGINTERFERON ALFA-2B [Suspect]
     Indication: HEPATITIS C
     Dosage: 1 IN 1 WK
     Route: 058
     Dates: start: 201301
  3. INCIVO (TELAPREVIR) [Suspect]
     Indication: HEPATITIS C
     Dosage: (750 MG, 3 IN 1 D)
     Route: 048
     Dates: start: 20130129

REACTIONS (12)
  - Insomnia [None]
  - Application site erythema [None]
  - Dyspnoea [None]
  - Asthenia [None]
  - Pruritus [None]
  - Dizziness [None]
  - Joint swelling [None]
  - Visual impairment [None]
  - Lethargy [None]
  - Feeling abnormal [None]
  - Disturbance in attention [None]
  - Anaemia [None]
